FAERS Safety Report 24690633 (Version 1)
Quarter: 2024Q4

REPORT INFORMATION
  Report Type: Spontaneous
  Country: US (occurrence: US)
  Receive Date: 20241203
  Receipt Date: 20241203
  Transmission Date: 20250114
  Serious: No
  Sender: BRISTOL-MYERS SQUIBB COMPANY
  Company Number: US-BRISTOL-MYERS SQUIBB COMPANY-2024-187232

PATIENT
  Age: 61 Year
  Sex: Male

DRUGS (2)
  1. ELIQUIS [Suspect]
     Active Substance: APIXABAN
     Indication: Product used for unknown indication
     Dosage: FREQ: TWO TABLETS ONCE PER DAY
  2. ELIQUIS [Suspect]
     Active Substance: APIXABAN
     Dosage: FREQ: 1 TABLET TWICE PER DAY

REACTIONS (1)
  - Treatment noncompliance [Unknown]
